FAERS Safety Report 9152224 (Version 1)
Quarter: 2013Q1

REPORT INFORMATION
  Report Type: Spontaneous
  Country: None (occurrence: TR)
  Receive Date: 20130308
  Receipt Date: 20130308
  Transmission Date: 20140127
  Serious: Yes (Death, Other)
  Sender: FDA-Public Use
  Company Number: TR-TEVA-389856ISR

PATIENT
  Age: 28 Year
  Sex: Female

DRUGS (9)
  1. DOXORUBICIN [Suspect]
     Indication: PRIMITIVE NEUROECTODERMAL TUMOUR
     Dosage: 50 MG/M2 DAILY; D1
  2. VINCRISTINE [Suspect]
     Indication: PRIMITIVE NEUROECTODERMAL TUMOUR
     Dosage: 2 MILLIGRAM DAILY; D1
  3. ETOPOSIDE [Suspect]
     Indication: PRIMITIVE NEUROECTODERMAL TUMOUR
     Dosage: 100 MG/M2 DAILY; ON D1-3 EVERY 3 WEEKS
  4. CISPLATIN [Suspect]
     Indication: PRIMITIVE NEUROECTODERMAL TUMOUR
     Dosage: 25 MG/M2 DAILY; D1-3 EVERY 3 WEEKS
  5. CYCLOPHOSPHAMIDE [Suspect]
     Indication: PRIMITIVE NEUROECTODERMAL TUMOUR
     Dosage: 1.8 G/M2 - D2
  6. ACTINOMYCIN D [Suspect]
     Indication: PRIMITIVE NEUROECTODERMAL TUMOUR
     Dosage: .5 MILLIGRAM DAILY; D1-5
  7. MESNA [Suspect]
     Indication: PRIMITIVE NEUROECTODERMAL TUMOUR
     Dosage: 2 G/M2 ON D1-3 EVERY 3 WEEKS
  8. IFOSFAMIDE [Suspect]
     Indication: PRIMITIVE NEUROECTODERMAL TUMOUR
     Dosage: 2 G/M2  ON D1-3 EVERY 3 WEEKS
  9. GRANULOCYTE COLONY STIMULATING FACTOR [Suspect]
     Dosage: 5 DAYS EVERY 3 WEEKS

REACTIONS (3)
  - Malignant neoplasm progression [Fatal]
  - Neutropenia [Unknown]
  - Hydronephrosis [Unknown]
